FAERS Safety Report 8811538 (Version 2)
Quarter: 2012Q4

REPORT INFORMATION
  Report Type: Spontaneous
  Country: US (occurrence: None)
  Receive Date: 20120921
  Receipt Date: 20121012
  Transmission Date: 20130627
  Serious: Yes (Other)
  Sender: FDA-Public Use
  Company Number: US-1194225

PATIENT
  Age: 69 Year
  Sex: Female
  Weight: 89.36 kg

DRUGS (7)
  1. SYSTANE EYEDROPS [Suspect]
     Dosage: 1 df qid ou ophthalmic
     Route: 047
     Dates: start: 20120904
  2. SIMVASTATIN [Concomitant]
  3. LISINOPRIL [Concomitant]
  4. ATENOLOL [Concomitant]
  5. VITAMIN D NOS [Concomitant]
  6. MULTIVITAMIN [Concomitant]
  7. ASPIRIN [Concomitant]

REACTIONS (5)
  - Dizziness [None]
  - Pallor [None]
  - Gait disturbance [None]
  - Fall [None]
  - Skin discolouration [None]
